FAERS Safety Report 7164471-2 (Version None)
Quarter: 2010Q4

REPORT INFORMATION
  Report Type: 
  Country: None (occurrence: None)
  Receive Date: 20101215
  Receipt Date: 20101208
  Transmission Date: 20110411
  Serious: Yes (Other)
  Sender: FDA-Public Use
  Company Number: US-JNJFOC-20101204034

PATIENT
  Sex: Female
  Weight: 56.25 kg

DRUGS (3)
  1. SPORANOX [Suspect]
     Indication: RESPIRATORY TRACT INFECTION FUNGAL
     Route: 048
  2. SPORANOX [Suspect]
     Route: 048
  3. OMEPRAZOLE [Concomitant]
     Indication: DYSPHAGIA
     Route: 048

REACTIONS (8)
  - BACK PAIN [None]
  - CHOKING [None]
  - CYSTITIS [None]
  - DYSPNOEA [None]
  - KIDNEY INFECTION [None]
  - MUCOSAL DISCOLOURATION [None]
  - OESOPHAGEAL STENOSIS [None]
  - WHITE BLOOD CELLS URINE POSITIVE [None]
